FAERS Safety Report 5283062-1 (Version None)
Quarter: 2007Q1

REPORT INFORMATION
  Report Type: 
  Country: None (occurrence: None)
  Receive Date: 20070327
  Receipt Date: 20070316
  Transmission Date: 20070707
  Serious: Yes (Other)
  Sender: FDA-Public Use
  Company Number: 238412

PATIENT
  Age: 82 Year
  Sex: Female

DRUGS (2)
  1. LUCENTIS [Suspect]
     Indication: MACULAR DEGENERATION
     Dosage: 1 DF
     Dates: start: 20070226
  2. AVASTIN [Suspect]
     Indication: MACULAR DEGENERATION
     Dosage: 1 DF
     Dates: start: 20060921, end: 20070124

REACTIONS (8)
  - ALANINE AMINOTRANSFERASE INCREASED [None]
  - ASPARTATE AMINOTRANSFERASE INCREASED [None]
  - CONDITION AGGRAVATED [None]
  - GAMMA-GLUTAMYLTRANSFERASE INCREASED [None]
  - JAUNDICE [None]
  - MACULAR DEGENERATION [None]
  - OCULAR ICTERUS [None]
  - VISUAL ACUITY REDUCED [None]
